FAERS Safety Report 16717196 (Version 3)
Quarter: 2019Q4

REPORT INFORMATION
  Report Type: Spontaneous
  Country: US (occurrence: US)
  Receive Date: 20190819
  Receipt Date: 20191031
  Transmission Date: 20200122
  Serious: Yes (Hospitalization)
  Sender: FDA-Public Use
  Company Number: US-PFIZER INC-2019271549

PATIENT
  Age: 72 Year
  Sex: Female
  Weight: 64.86 kg

DRUGS (2)
  1. IBRANCE [Suspect]
     Active Substance: PALBOCICLIB
     Indication: BREAST CANCER FEMALE
     Dosage: 125 MG, UNK
  2. FASLODEX [Concomitant]
     Active Substance: FULVESTRANT
     Dosage: UNK
     Dates: start: 20181101

REACTIONS (4)
  - Malaise [Recovered/Resolved]
  - Enteritis [Recovered/Resolved]
  - Nausea [Unknown]
  - Vomiting [Unknown]
